FAERS Safety Report 4717086-7 (Version None)
Quarter: 2005Q3

REPORT INFORMATION
  Report Type: 
  Country: None (occurrence: None)
  Receive Date: 20050712
  Receipt Date: 20040728
  Transmission Date: 20060218
  Serious: Yes (Hospitalization)
  Sender: FDA-Public Use
  Company Number: PHEH2004US07717

PATIENT
  Age: 29 Year
  Sex: Female

DRUGS (1)
  1. GLEEVEC [Suspect]
     Indication: CHRONIC MYELOID LEUKAEMIA
     Dosage: 600 MG, QD, ORAL
     Route: 048
     Dates: start: 20040623, end: 20040704

REACTIONS (3)
  - GASTRITIS [None]
  - GASTROINTESTINAL HAEMORRHAGE [None]
  - SPLENOMEGALY [None]
